FAERS Safety Report 23752789 (Version 1)
Quarter: 2024Q2

REPORT INFORMATION
  Report Type: Spontaneous
  Country: GB (occurrence: GB)
  Receive Date: 20240417
  Receipt Date: 20240417
  Transmission Date: 20240716
  Serious: Yes (Hospitalization, Disabling)
  Sender: FDA-Public Use
  Company Number: None

PATIENT
  Age: 62 Year
  Sex: Male

DRUGS (7)
  1. CIPROFLOXACIN [Suspect]
     Active Substance: CIPROFLOXACIN
     Indication: Lower respiratory tract infection
     Dosage: 250 MG
     Route: 048
  2. AMITRIPTYLINE [Concomitant]
     Active Substance: AMITRIPTYLINE
  3. FUROSEMIDE [Concomitant]
     Active Substance: FUROSEMIDE
  4. INDAPAMIDE [Concomitant]
     Active Substance: INDAPAMIDE
  5. PREDNISOLONE [Concomitant]
     Active Substance: PREDNISOLONE
  6. RAMIPRIL [Concomitant]
     Active Substance: RAMIPRIL
  7. SIMVASTATIN [Concomitant]
     Active Substance: SIMVASTATIN

REACTIONS (1)
  - Vancomycin infusion reaction [Recovering/Resolving]

NARRATIVE: CASE EVENT DATE: 20240408
